FAERS Safety Report 11461450 (Version 1)
Quarter: 2015Q3

REPORT INFORMATION
  Report Type: Spontaneous
  Country: US (occurrence: US)
  Receive Date: 20150831
  Receipt Date: 20150831
  Transmission Date: 20151125
  Serious: No
  Sender: FDA-Public Use
  Company Number: US-ELI_LILLY_AND_COMPANY-US201006007591

PATIENT
  Age: 41 Year
  Sex: Female

DRUGS (6)
  1. CYMBALTA [Suspect]
     Active Substance: DULOXETINE HYDROCHLORIDE
     Indication: MYOFASCIAL PAIN SYNDROME
     Dosage: 30 MG, UNK
     Dates: start: 20100511, end: 20100511
  2. XANAX [Concomitant]
     Active Substance: ALPRAZOLAM
  3. IBUPROFEN. [Concomitant]
     Active Substance: IBUPROFEN
  4. FLEXERIL [Concomitant]
     Active Substance: CYCLOBENZAPRINE HYDROCHLORIDE
  5. HYDROCODONE [Concomitant]
     Active Substance: HYDROCODONE
  6. ZANAFLEX [Concomitant]
     Active Substance: TIZANIDINE HYDROCHLORIDE

REACTIONS (4)
  - Off label use [Recovered/Resolved]
  - Agitation [Unknown]
  - Tachyphrenia [Recovered/Resolved]
  - Suicidal ideation [Recovered/Resolved]

NARRATIVE: CASE EVENT DATE: 20100511
